FAERS Safety Report 9881231 (Version 1)
Quarter: 2014Q1

REPORT INFORMATION
  Report Type: Spontaneous
  Country: US (occurrence: US)
  Receive Date: 20140207
  Receipt Date: 20140207
  Transmission Date: 20141002
  Serious: No
  Sender: FDA-Public Use
  Company Number: US-009507513-1402USA002774

PATIENT
  Age: 8 Year
  Sex: Male
  Weight: 24.49 kg

DRUGS (2)
  1. CLARITIN REDITABS [Suspect]
     Indication: NASOPHARYNGITIS
     Dosage: 20 MG, ONCE
     Route: 048
     Dates: start: 20140119
  2. CLARITIN REDITABS [Suspect]
     Indication: HYPERSENSITIVITY

REACTIONS (2)
  - Overdose [Unknown]
  - No adverse event [Unknown]
